APPROVED DRUG PRODUCT: XYZAL
Active Ingredient: LEVOCETIRIZINE DIHYDROCHLORIDE
Strength: 2.5MG/5ML **Federal Register determination that product was not discontinued or withdrawn for safety or effectiveness reasons**
Dosage Form/Route: SOLUTION;ORAL
Application: N022157 | Product #001
Applicant: CHATTEM INC DBA SANOFI CONSUMER HEALTHCARE
Approved: Jan 28, 2008 | RLD: Yes | RS: No | Type: DISCN